FAERS Safety Report 10498638 (Version 2)
Quarter: 2014Q4

REPORT INFORMATION
  Report Type: Spontaneous
  Country: US (occurrence: US)
  Receive Date: 20141006
  Receipt Date: 20141028
  Transmission Date: 20150528
  Serious: Yes (Hospitalization)
  Sender: FDA-Public Use
  Company Number: US-B.I. PHARMACEUTICALS,INC./RIDGEFIELD-2014-BI-47052BP

PATIENT
  Age: 72 Year
  Sex: Female

DRUGS (1)
  1. PRADAXA [Suspect]
     Active Substance: DABIGATRAN ETEXILATE MESYLATE
     Indication: PRODUCT USED FOR UNKNOWN INDICATION
     Dosage: 300 MG
     Route: 048
     Dates: end: 20131108

REACTIONS (9)
  - Atrial fibrillation [Unknown]
  - Hypotension [Recovered/Resolved]
  - Hiatus hernia [Unknown]
  - Urinary tract infection [Unknown]
  - Gastritis erosive [Unknown]
  - Renal failure [Not Recovered/Not Resolved]
  - Gastrointestinal haemorrhage [Recovered/Resolved]
  - Dehydration [Not Recovered/Not Resolved]
  - Traumatic ulcer [Unknown]

NARRATIVE: CASE EVENT DATE: 201311
